FAERS Safety Report 25708761 (Version 2)
Quarter: 2025Q4

REPORT INFORMATION
  Report Type: Report from Study
  Country: GB (occurrence: GB)
  Receive Date: 20250821
  Receipt Date: 20251014
  Transmission Date: 20260117
  Serious: Yes (Death, Other)
  Sender: SAMSUNG BIOEPIS
  Company Number: GB-SAMSUNG BIOEPIS-SB-2025-28083

PATIENT
  Age: 79 Year
  Sex: Female

DRUGS (1)
  1. ETANERCEPT [Suspect]
     Active Substance: ETANERCEPT
     Indication: Rheumatoid arthritis
     Route: 058

REACTIONS (2)
  - Neoplasm malignant [Fatal]
  - Product use issue [Unknown]
